FAERS Safety Report 6471383-6 (Version None)
Quarter: 2009Q4

REPORT INFORMATION
  Report Type: 
  Country: None (occurrence: None)
  Receive Date: 20091203
  Receipt Date: 20080206
  Transmission Date: 20100525
  Serious: Yes (Other)
  Sender: FDA-Public Use
  Company Number: US-ELI_LILLY_AND_COMPANY-US200802001548

PATIENT
  Sex: Female
  Weight: 75.283 kg

DRUGS (12)
  1. BYETTA [Suspect]
     Indication: TYPE 2 DIABETES MELLITUS
     Dosage: 5 UG, 2/D
     Route: 058
     Dates: start: 20050801, end: 20071207
  2. BYETTA [Suspect]
     Dosage: 10 UG, 2/D
     Route: 058
     Dates: start: 20071208, end: 20080108
  3. BYETTA [Suspect]
     Dosage: 5 UG, 2/D
     Route: 058
     Dates: start: 20080109
  4. METFORMIN HCL [Concomitant]
     Dosage: UNK, DAILY (1/D)
  5. METFORMIN HCL [Concomitant]
     Dosage: 1000 MG, 2/D
     Dates: start: 20050801
  6. GLUCOTROL [Concomitant]
     Dosage: 5 MG, DAILY (1/D)
     Dates: end: 20050801
  7. GLUCOTROL XL [Concomitant]
     Dosage: UNK, DAILY (1/D)
     Dates: start: 20050801, end: 20071207
  8. GLUCOTROL XL [Concomitant]
     Dosage: UNK, DAILY (1/D)
     Dates: start: 20080108
  9. ACTOS [Concomitant]
     Dosage: UNK, DAILY (1/D)
     Dates: start: 20050801, end: 20071207
  10. AVALIDE [Concomitant]
     Indication: HYPERTENSION
     Dosage: UNK, EACH EVENING
     Dates: start: 20050801
  11. ZOCOR [Concomitant]
     Indication: BLOOD CHOLESTEROL
     Dosage: UNK, EACH EVENING
     Dates: start: 20050801
  12. ASPIRIN [Concomitant]
     Dosage: 81 MG, DAILY (1/D)
     Dates: start: 20050801

REACTIONS (7)
  - FALL [None]
  - FEELING ABNORMAL [None]
  - LOSS OF CONSCIOUSNESS [None]
  - NAUSEA [None]
  - VOMITING [None]
  - WEIGHT DECREASED [None]
  - WEIGHT INCREASED [None]
